FAERS Safety Report 7067377-2 (Version None)
Quarter: 2010Q4

REPORT INFORMATION
  Report Type: 
  Country: None (occurrence: None)
  Receive Date: 20101028
  Receipt Date: 20101020
  Transmission Date: 20110411
  Serious: Yes (Hospitalization, Other)
  Sender: FDA-Public Use
  Company Number: US-US-EMD SERONO, INC.-232024J10USA

PATIENT
  Sex: Female
  Weight: 67 kg

DRUGS (16)
  1. REBIF [Suspect]
     Indication: RELAPSING-REMITTING MULTIPLE SCLEROSIS
     Route: 058
     Dates: start: 20100114, end: 20100225
  2. REBIF [Suspect]
     Route: 058
     Dates: start: 20100225
  3. AMANTADINE [Concomitant]
     Route: 048
     Dates: start: 20080110
  4. ASPIRIN [Concomitant]
     Indication: PREMEDICATION
  5. PREMARIN [Concomitant]
     Route: 048
     Dates: start: 20070430
  6. ACIPHEX [Concomitant]
     Route: 048
     Dates: start: 20070430
  7. MAALOX [Concomitant]
  8. INDERAL [Concomitant]
     Indication: HYPERTENSION
     Route: 048
     Dates: start: 20070430, end: 20100101
  9. NORVASC [Concomitant]
     Indication: HYPERTENSION
     Route: 048
     Dates: start: 20070430
  10. MAXZIDE [Concomitant]
     Indication: HYPERTENSION
     Route: 048
     Dates: start: 20070430
  11. PRILOSEC [Concomitant]
  12. PERCOCET [Concomitant]
     Route: 048
     Dates: start: 20070212
  13. TOPAMAX [Concomitant]
     Route: 048
     Dates: start: 20081120
  14. ZANAFLEX [Concomitant]
     Route: 048
     Dates: start: 20080709
  15. WELCHOL [Concomitant]
     Route: 048
     Dates: start: 20090115
  16. PROMETHAZINE [Concomitant]
     Dates: start: 20100111

REACTIONS (19)
  - BLOOD CREATINE ABNORMAL [None]
  - BLOOD TRIGLYCERIDES ABNORMAL [None]
  - COLITIS ISCHAEMIC [None]
  - COLITIS ULCERATIVE [None]
  - DEHYDRATION [None]
  - DIARRHOEA [None]
  - DIVERTICULITIS [None]
  - GASTRIC ULCER [None]
  - GLOMERULAR FILTRATION RATE DECREASED [None]
  - HEADACHE [None]
  - HEART RATE DECREASED [None]
  - MIGRAINE [None]
  - NAUSEA [None]
  - URTICARIA [None]
  - VENTRICULAR EXTRASYSTOLES [None]
  - VITAMIN D DECREASED [None]
  - VOMITING [None]
  - VULVOVAGINAL BURNING SENSATION [None]
  - WEIGHT DECREASED [None]
